FAERS Safety Report 7689280-7 (Version None)
Quarter: 2011Q3

REPORT INFORMATION
  Report Type: 
  Country: None (occurrence: None)
  Receive Date: 20110817
  Receipt Date: 20110810
  Transmission Date: 20111222
  Serious: Yes (Other)
  Sender: FDA-Public Use
  Company Number: KR-PFIZER INC-2011158755

PATIENT
  Age: 66 Year
  Sex: Male

DRUGS (2)
  1. CARDURA [Suspect]
     Indication: BENIGN PROSTATIC HYPERPLASIA
     Dosage: 1 TABLET, 1X/DAY
     Route: 048
  2. TOVIAZ [Suspect]
     Indication: BENIGN PROSTATIC HYPERPLASIA
     Dosage: 1 TABLET, 1X/DAY
     Route: 048

REACTIONS (4)
  - DRUG INEFFECTIVE [None]
  - GASTRITIS [None]
  - GASTRIC ULCER [None]
  - HELICOBACTER INFECTION [None]
